FAERS Safety Report 14329353 (Version 1)
Quarter: 2017Q4

REPORT INFORMATION
  Report Type: Spontaneous
  Country: US (occurrence: US)
  Receive Date: 20171227
  Receipt Date: 20171227
  Transmission Date: 20180321
  Serious: No
  Sender: FDA-Public Use
  Company Number: US-BAYER-2017-241698

PATIENT
  Age: 82 Year
  Sex: Male
  Weight: 61 kg

DRUGS (1)
  1. ALEVE [Suspect]
     Active Substance: NAPROXEN SODIUM
     Indication: PAIN
     Dosage: 2 CAPLET AFTER BREAKFAST AND 2 AFTER DINNER
     Route: 048
     Dates: start: 20171211

REACTIONS (2)
  - Extra dose administered [Unknown]
  - Inappropriate prescribing [Unknown]
